APPROVED DRUG PRODUCT: GALLIUM CITRATE GA 67
Active Ingredient: GALLIUM CITRATE GA-67
Strength: 2mCi/ML
Dosage Form/Route: INJECTABLE;INJECTION
Application: N018058 | Product #001 | TE Code: BS
Applicant: CURIUM US LLC
Approved: Approved Prior to Jan 1, 1982 | RLD: No | RS: No | Type: RX